FAERS Safety Report 19600607 (Version 1)
Quarter: 2021Q3

REPORT INFORMATION
  Report Type: Spontaneous
  Country: US (occurrence: US)
  Receive Date: 20210723
  Receipt Date: 20210723
  Transmission Date: 20211014
  Serious: No
  Sender: FDA-Public Use
  Company Number: US-LUPIN PHARMACEUTICALS INC.-2021-01934

PATIENT
  Age: 28 Year
  Sex: Female

DRUGS (2)
  1. JENCYCLA [Suspect]
     Active Substance: NORETHINDRONE
     Indication: CONTRACEPTION
     Dosage: UNK
     Route: 065
     Dates: end: 202011
  2. JENCYCLA [Suspect]
     Active Substance: NORETHINDRONE
     Dosage: UNK
     Route: 065
     Dates: start: 202011

REACTIONS (1)
  - Feeling abnormal [Unknown]
